FAERS Safety Report 5950970-5 (Version None)
Quarter: 2008Q4

REPORT INFORMATION
  Report Type: 
  Country: None (occurrence: None)
  Receive Date: 20081110
  Receipt Date: 20080912
  Transmission Date: 20090506
  Serious: Yes (Other)
  Sender: FDA-Public Use
  Company Number: 2008S1016337

PATIENT
  Age: 17 Year
  Sex: Male
  Weight: 120.2032 kg

DRUGS (2)
  1. AMNESTEEM [Suspect]
     Indication: ACNE
     Dosage: 20 MG;TWICE A DAY;ORAL
     Route: 048
     Dates: start: 20080701, end: 20080812
  2. VALTREX [Suspect]
     Indication: ORAL HERPES
     Dosage: 4 GM;DAILY;ORAL
     Route: 048
     Dates: start: 20080804, end: 20080804

REACTIONS (7)
  - BURNING SENSATION [None]
  - EPISTAXIS [None]
  - LIP DRY [None]
  - OEDEMA PERIPHERAL [None]
  - ORAL HERPES [None]
  - PRURITUS [None]
  - URTICARIA [None]
